FAERS Safety Report 10569594 (Version 2)
Quarter: 2014Q4

REPORT INFORMATION
  Report Type: Report from Study
  Country: PH (occurrence: PH)
  Receive Date: 20141106
  Receipt Date: 20141118
  Transmission Date: 20150529
  Serious: Yes (Death)
  Sender: FDA-Public Use
  Company Number: PHHY2014PH144387

PATIENT
  Age: 64 Year
  Sex: Female

DRUGS (3)
  1. GLIVEC [Suspect]
     Active Substance: IMATINIB MESYLATE
     Indication: CHRONIC MYELOID LEUKAEMIA
     Dosage: 800 MG, QD
     Route: 065
  2. INTERFERON NOS [Suspect]
     Active Substance: INTERFERON
     Indication: CHRONIC MYELOID LEUKAEMIA
     Dosage: 500 UG, QW
     Route: 058
     Dates: start: 201409
  3. NILOTINIB [Concomitant]
     Active Substance: NILOTINIB
     Indication: CHRONIC MYELOID LEUKAEMIA
     Dosage: 800 MG, QD
     Route: 048
     Dates: start: 2011, end: 201401

REACTIONS (4)
  - Chromosome analysis abnormal [Unknown]
  - Dyspnoea [Unknown]
  - White blood cell count increased [Unknown]
  - Death [Fatal]

NARRATIVE: CASE EVENT DATE: 20140905
